FAERS Safety Report 9850545 (Version 1)
Quarter: 2013Q4

REPORT INFORMATION
  Report Type: Spontaneous
  Country: US (occurrence: None)
  Receive Date: 20131226
  Receipt Date: 20131226
  Transmission Date: 20140711
  Serious: Yes (Other)
  Sender: FDA-Public Use
  Company Number: PHEH2013US014856

PATIENT
  Age: 72 Year
  Sex: Female

DRUGS (1)
  1. VIVELLE DOT [Suspect]
     Route: 062

REACTIONS (3)
  - Breast cancer [None]
  - Migraine [None]
  - Hot flush [None]
